FAERS Safety Report 6018221-3 (Version None)
Quarter: 2008Q4

REPORT INFORMATION
  Report Type: 
  Country: None (occurrence: None)
  Receive Date: 20081223
  Receipt Date: 20081217
  Transmission Date: 20090506
  Serious: Yes (Hospitalization)
  Sender: FDA-Public Use
  Company Number: US-ELI_LILLY_AND_COMPANY-US200812004497

PATIENT
  Age: 59 Year
  Sex: Female

DRUGS (12)
  1. GEMZAR [Suspect]
     Indication: PANCREATIC CARCINOMA
     Dosage: 1800 MG, WEEKLY (1/W)
     Dates: start: 20080930
  2. GLIPIZIDE [Concomitant]
     Dates: end: 20081001
  3. METFORMIN HCL [Concomitant]
     Dosage: UNK, UNK
  4. MAGNESIUM OXIDE [Concomitant]
     Dosage: UNK, UNK
     Dates: start: 20080801
  5. COUMADIN [Concomitant]
     Dosage: 5 MG, 5 DAYS A WEEK
     Dates: start: 20080101
  6. COUMADIN [Concomitant]
     Dosage: 7.5 MG, 2 DAYS A WEEK
     Dates: start: 20080101
  7. ANTIHYPERTENSIVES [Concomitant]
  8. PANCREASE [Concomitant]
     Indication: POSTOPERATIVE CARE
  9. HYDROCODONE BITARTRATE [Concomitant]
     Indication: POSTOPERATIVE CARE
  10. ZOFRAN [Concomitant]
  11. PROTONIX [Concomitant]
  12. ZANTAC [Concomitant]

REACTIONS (8)
  - BLOOD MAGNESIUM DECREASED [None]
  - BLOOD POTASSIUM DECREASED [None]
  - HAEMOGLOBIN DECREASED [None]
  - HERNIA [None]
  - NEUTROPHIL COUNT [None]
  - PYREXIA [None]
  - WHITE BLOOD CELL COUNT [None]
  - WHITE BLOOD CELL DISORDER [None]
